FAERS Safety Report 13121049 (Version 2)
Quarter: 2017Q1

REPORT INFORMATION
  Report Type: Spontaneous
  Country: US (occurrence: US)
  Receive Date: 20170117
  Receipt Date: 20170202
  Transmission Date: 20170428
  Serious: Yes (Other)
  Sender: FDA-Public Use
  Company Number: US-BAYER-2017-006303

PATIENT
  Age: 75 Year
  Sex: Male

DRUGS (5)
  1. XOFIGO [Suspect]
     Active Substance: RADIUM RA-223 DICHLORIDE
     Indication: HORMONE-REFRACTORY PROSTATE CANCER
     Dosage: 141.0 ?CI, ONCE
     Route: 042
     Dates: start: 20161206, end: 20161206
  2. XOFIGO [Suspect]
     Active Substance: RADIUM RA-223 DICHLORIDE
     Indication: HORMONE-REFRACTORY PROSTATE CANCER
     Dosage: 144.8 ?CI, ONCE
     Route: 042
     Dates: start: 20160913, end: 20160913
  3. XOFIGO [Suspect]
     Active Substance: RADIUM RA-223 DICHLORIDE
     Indication: HORMONE-REFRACTORY PROSTATE CANCER
     Dosage: 145.6 ?CI, ONCE
     Route: 042
     Dates: start: 20161011, end: 20161011
  4. XOFIGO [Suspect]
     Active Substance: RADIUM RA-223 DICHLORIDE
     Indication: HORMONE-REFRACTORY PROSTATE CANCER
     Dosage: 146.5 ?CI, ONCE
     Route: 042
     Dates: start: 20160806, end: 20160806
  5. XOFIGO [Suspect]
     Active Substance: RADIUM RA-223 DICHLORIDE
     Indication: HORMONE-REFRACTORY PROSTATE CANCER
     Dosage: 143.0 ?CI, ONCE
     Route: 042
     Dates: start: 20161108, end: 20161108

REACTIONS (4)
  - Nausea [None]
  - Metastases to bone [None]
  - General physical health deterioration [None]
  - Musculoskeletal chest pain [None]
